FAERS Safety Report 6806713-6 (Version None)
Quarter: 2010Q2

REPORT INFORMATION
  Report Type: 
  Country: None (occurrence: None)
  Receive Date: 20100629
  Receipt Date: 20080421
  Transmission Date: 20101027
  Serious: No
  Sender: FDA-Public Use
  Company Number: US-PFIZER INC-2008036318

PATIENT
  Sex: Male

DRUGS (3)
  1. VIAGRA [Suspect]
     Indication: OFF LABEL USE
     Dosage: 20 TO 50 MG
  2. VIAGRA [Suspect]
     Indication: OEDEMA PERIPHERAL
  3. VIAGRA [Suspect]
     Indication: VENOUS INSUFFICIENCY

REACTIONS (1)
  - OFF LABEL USE [None]
